FAERS Safety Report 5804476-4 (Version None)
Quarter: 2008Q3

REPORT INFORMATION
  Report Type: 
  Country: None (occurrence: None)
  Receive Date: 20080709
  Receipt Date: 20080704
  Transmission Date: 20090109
  Serious: Yes (Hospitalization)
  Sender: FDA-Public Use
  Company Number: B0522745A

PATIENT
  Age: 90 Year
  Sex: Female

DRUGS (6)
  1. VALTREX [Suspect]
     Indication: HERPES ZOSTER
     Dosage: 1000MG THREE TIMES PER DAY
     Route: 048
     Dates: start: 20080519, end: 20080525
  2. UNKNOWN [Concomitant]
     Indication: HERPES ZOSTER
     Dosage: 250MG PER DAY
     Route: 042
     Dates: start: 20080519, end: 20080523
  3. AMLODIPINE [Concomitant]
     Indication: HYPERTENSION
     Dosage: 5MG PER DAY
     Route: 048
     Dates: start: 20080519, end: 20080526
  4. GASPORT [Concomitant]
     Indication: GASTRIC ULCER
     Dosage: 20MG PER DAY
     Route: 048
     Dates: start: 20080519, end: 20080526
  5. GASLON N [Concomitant]
     Indication: GASTRIC ULCER
     Dosage: 2MG PER DAY
     Route: 048
     Dates: start: 20080519, end: 20080526
  6. SIMVASTATIN [Concomitant]
     Dosage: 10MG PER DAY
     Route: 048
     Dates: start: 20080519, end: 20080526

REACTIONS (4)
  - ANOREXIA [None]
  - BLOOD CREATININE INCREASED [None]
  - BLOOD UREA INCREASED [None]
  - RENAL FAILURE ACUTE [None]
